FAERS Safety Report 5377204-7 (Version None)
Quarter: 2007Q2

REPORT INFORMATION
  Report Type: 
  Country: None (occurrence: None)
  Receive Date: 20070629
  Receipt Date: 20070629
  Transmission Date: 20071010
  Serious: Yes (Disabling, Other)
  Sender: FDA-Public Use
  Company Number: None

PATIENT
  Sex: Male
  Weight: 83.4 kg

DRUGS (2)
  1. REVLIMID [Suspect]
     Indication: MULTIPLE MYELOMA
     Dosage: 5MG DAILY PO
     Route: 048
     Dates: start: 20070119, end: 20070214
  2. REVLIMID [Suspect]
     Indication: MULTIPLE MYELOMA
     Dosage: 5MG DAILY PO
     Route: 048
     Dates: start: 20070215, end: 20070529

REACTIONS (1)
  - PLATELET COUNT DECREASED [None]
